FAERS Safety Report 13371295 (Version 1)
Quarter: 2017Q1

REPORT INFORMATION
  Report Type: Spontaneous
  Country: US (occurrence: US)
  Receive Date: 20170324
  Receipt Date: 20170324
  Transmission Date: 20170429
  Serious: Yes (Other)
  Sender: FDA-Public Use
  Company Number: US-ELI_LILLY_AND_COMPANY-US201608002348

PATIENT
  Sex: Female

DRUGS (2)
  1. CYMBALTA [Suspect]
     Active Substance: DULOXETINE HYDROCHLORIDE
     Indication: DEPRESSION
     Dosage: UNK, UNKNOWN
     Route: 065
  2. CYMBALTA [Suspect]
     Active Substance: DULOXETINE HYDROCHLORIDE
     Indication: NEURALGIA

REACTIONS (29)
  - Palpitations [Unknown]
  - Asthenia [Unknown]
  - Anxiety [Unknown]
  - Morbid thoughts [Unknown]
  - Tinnitus [Unknown]
  - Panic attack [Unknown]
  - Hyperhidrosis [Unknown]
  - Dizziness [Unknown]
  - Irritability [Unknown]
  - Dysphoria [Unknown]
  - Feeling jittery [Unknown]
  - Influenza like illness [Unknown]
  - Nausea [Unknown]
  - Drug withdrawal syndrome [Unknown]
  - Headache [Unknown]
  - Suicidal ideation [Unknown]
  - Agitation [Unknown]
  - Coordination abnormal [Unknown]
  - Tremor [Unknown]
  - Vertigo [Unknown]
  - Nightmare [Unknown]
  - Vomiting [Unknown]
  - Confusional state [Unknown]
  - Fatigue [Unknown]
  - Insomnia [Unknown]
  - Mental status changes [Unknown]
  - Disturbance in attention [Unknown]
  - Affect lability [Unknown]
  - Paraesthesia [Unknown]
